FAERS Safety Report 25282091 (Version 3)
Quarter: 2025Q4

REPORT INFORMATION
  Report Type: Spontaneous
  Country: EU (occurrence: EU)
  Receive Date: 20250508
  Receipt Date: 20251009
  Transmission Date: 20260117
  Serious: Yes (Hospitalization, Other)
  Sender: AUROBINDO
  Company Number: EU-ROCHE-2699418

PATIENT
  Age: 35 Year
  Sex: Female

DRUGS (5)
  1. FINGOLIMOD [Suspect]
     Active Substance: FINGOLIMOD
     Indication: Product used for unknown indication
     Dosage: UNK
     Route: 065
  2. OCREVUS [Suspect]
     Active Substance: OCRELIZUMAB
     Indication: Relapsing-remitting multiple sclerosis
     Dosage: 300 MILLIGRAM, EVERY 14 DAYS (FIRST AND SECOND INITIAL DOSE)
     Route: 042
     Dates: start: 20200930, end: 20201014
  3. OCREVUS [Suspect]
     Active Substance: OCRELIZUMAB
     Dosage: 600 MILLIGRAM(6 MONTH)(6TH MAINTENANCE DOSE IN OCT/2023, AND THE 7TH MAINTENANCE ON 24/APR/2024)
     Route: 042
  4. OCREVUS [Suspect]
     Active Substance: OCRELIZUMAB
     Dosage: 600 MILLIGRAM
     Route: 042
  5. OCREVUS [Suspect]
     Active Substance: OCRELIZUMAB
     Dosage: 920 MILLIGRAM
     Route: 058
     Dates: start: 20200930

REACTIONS (15)
  - Multiple sclerosis relapse [Recovered/Resolved]
  - Inflammation [Recovered/Resolved]
  - Multiple sclerosis [Not Recovered/Not Resolved]
  - Dizziness [Recovered/Resolved]
  - Headache [Recovered/Resolved]
  - Nausea [Recovered/Resolved]
  - Fatigue [Recovered/Resolved]
  - COVID-19 [Recovered/Resolved]
  - Human papilloma virus test positive [Not Recovered/Not Resolved]
  - Smear cervix abnormal [Recovered/Resolved]
  - Vaccination failure [Not Recovered/Not Resolved]
  - Periodontitis [Recovered/Resolved]
  - Anogenital warts [Recovering/Resolving]
  - Injection site pain [Recovered/Resolved]
  - Injection site discolouration [Recovered/Resolved]

NARRATIVE: CASE EVENT DATE: 20200930
